FAERS Safety Report 4602027-3 (Version None)
Quarter: 2005Q1

REPORT INFORMATION
  Report Type: 
  Country: None (occurrence: None)
  Receive Date: 20050131
  Receipt Date: 20041111
  Transmission Date: 20050727
  Serious: No
  Sender: FDA-Public Use
  Company Number: 200418759US

PATIENT
  Age: 26 Year
  Sex: Female
  Weight: 63.6 kg

DRUGS (3)
  1. TELITHROMYCIN (KETEK) TABLETS [Suspect]
     Indication: PHARYNGITIS STREPTOCOCCAL
     Dosage: 400 2 TABLETS MG QD PO
     Route: 048
     Dates: start: 20041108, end: 20041110
  2. TELITHROMYCIN (KETEK) TABLETS [Suspect]
     Indication: PHARYNGITIS STREPTOCOCCAL
     Dosage: 800 MG BID PO
     Route: 048
     Dates: start: 20041111, end: 20041111
  3. ORAL CONTRACEPTIVE NOS [Concomitant]

REACTIONS (4)
  - DISTURBANCE IN ATTENTION [None]
  - DIZZINESS [None]
  - MEMORY IMPAIRMENT [None]
  - VISION BLURRED [None]
